FAERS Safety Report 18544847 (Version 2)
Quarter: 2021Q2

REPORT INFORMATION
  Report Type: Report from Study
  Country: DE (occurrence: AR)
  Receive Date: 20201125
  Receipt Date: 20210518
  Transmission Date: 20210717
  Serious: Yes (Hospitalization, Other)
  Sender: FDA-Public Use
  Company Number: AR-ELI_LILLY_AND_COMPANY-AR202011010401

PATIENT
  Sex: Male

DRUGS (2)
  1. CETUXIMAB. [Suspect]
     Active Substance: CETUXIMAB
     Indication: COLORECTAL CANCER
     Dosage: 438 MG, WEEKLY (1/W)
     Route: 065
     Dates: start: 202008
  2. CETUXIMAB. [Suspect]
     Active Substance: CETUXIMAB
     Dosage: 438 MG, WEEKLY (1/W)
     Route: 065
     Dates: start: 20191215

REACTIONS (4)
  - Kidney infection [Recovered/Resolved]
  - Fistula [Recovered/Resolved]
  - Urethral injury [Recovered/Resolved]
  - Weight decreased [Unknown]

NARRATIVE: CASE EVENT DATE: 2020
